FAERS Safety Report 18434269 (Version 1)
Quarter: 2020Q4

REPORT INFORMATION
  Report Type: Report from Study
  Country: DE (occurrence: DE)
  Receive Date: 20201027
  Receipt Date: 20201027
  Transmission Date: 20210114
  Serious: Yes (Death, Other)
  Sender: FDA-Public Use
  Company Number: DE-REGENERON PHARMACEUTICALS, INC.-2020-84338

PATIENT

DRUGS (21)
  1. ZINGIBER OFFICINALE [Concomitant]
     Active Substance: GINGER
     Indication: PRODUCT USED FOR UNKNOWN INDICATION
     Dosage: UNK
     Dates: start: 2016, end: 20200920
  2. AHCC [Concomitant]
     Indication: PRODUCT USED FOR UNKNOWN INDICATION
     Dosage: UNK
     Dates: start: 2016, end: 20200920
  3. ISA101B [Suspect]
     Active Substance: INVESTIGATIONAL PRODUCT
     Dosage: ISA101B, SINGLE, DAY 1
     Route: 058
     Dates: start: 20200820, end: 20200820
  4. SELENIUM [Concomitant]
     Active Substance: SELENIUM
     Indication: PRODUCT USED FOR UNKNOWN INDICATION
     Dosage: UNK
     Dates: start: 2016, end: 20200920
  5. COLIBIOGEN                         /00593101/ [Concomitant]
     Indication: PRODUCT USED FOR UNKNOWN INDICATION
     Dosage: UNK
     Dates: start: 2016, end: 20200920
  6. CEMIPLIMAB [Suspect]
     Active Substance: CEMIPLIMAB
  7. ISA101B [Suspect]
     Active Substance: INVESTIGATIONAL PRODUCT
     Dosage: ISA101B, SINGLE, DAY 29
     Route: 058
     Dates: start: 20201001, end: 20201001
  8. AMLODIPINE [Concomitant]
     Active Substance: AMLODIPINE BESYLATE
     Indication: PRODUCT USED FOR UNKNOWN INDICATION
     Dosage: UNK
     Dates: start: 2010
  9. ISA101B [Suspect]
     Active Substance: INVESTIGATIONAL PRODUCT
     Dosage: CEMIPLIMAB 350 MG, SINGLE, DAY 29
     Route: 042
     Dates: start: 20201001, end: 20201001
  10. ISA101B [Suspect]
     Active Substance: INVESTIGATIONAL PRODUCT
     Dosage: CEMIPLIMAB, 350 MG, SINGLE, DAY 50
     Dates: start: 20201020, end: 20201020
  11. ISA101B [Suspect]
     Active Substance: INVESTIGATIONAL PRODUCT
     Dosage: ISA101B, SINGLE, DAY 50
     Route: 058
     Dates: start: 20201020, end: 20201020
  12. VITIS VINIFERA SEED EXTRACT [Concomitant]
     Indication: PRODUCT USED FOR UNKNOWN INDICATION
     Dosage: UNK
     Dates: start: 2016, end: 20200920
  13. CURCUMA LONGA [Concomitant]
     Active Substance: HERBALS\TURMERIC
     Indication: PRODUCT USED FOR UNKNOWN INDICATION
     Dosage: UNK
     Dates: start: 2016, end: 20200920
  14. ISA101B [Suspect]
     Active Substance: INVESTIGATIONAL PRODUCT
     Indication: OROPHARYNGEAL CANCER
     Dosage: CEMIPLIMAB, 350 MG, SINGLE, DAY 8
     Route: 042
     Dates: start: 20200827, end: 20200827
  15. L-THYROXIN                         /00068001/ [Concomitant]
     Active Substance: LEVOTHYROXINE
     Indication: PRODUCT USED FOR UNKNOWN INDICATION
     Dosage: UNK
     Dates: start: 201805
  16. GRAVO [Concomitant]
     Indication: PRODUCT USED FOR UNKNOWN INDICATION
     Dosage: UNK
     Dates: start: 2016, end: 20200920
  17. BASEN KOMPLEX [Concomitant]
     Indication: PRODUCT USED FOR UNKNOWN INDICATION
     Dosage: UNK
     Dates: start: 2016, end: 20200920
  18. BROMELAIN-POS [Concomitant]
     Active Substance: BROMELAINS
     Indication: PRODUCT USED FOR UNKNOWN INDICATION
     Dosage: UNK
     Dates: start: 2016, end: 20200920
  19. SULFORAPHANE. [Concomitant]
     Active Substance: SULFORAPHANE
     Indication: PRODUCT USED FOR UNKNOWN INDICATION
  20. BUDESONIDE. [Concomitant]
     Active Substance: BUDESONIDE
     Indication: PRODUCT USED FOR UNKNOWN INDICATION
     Dosage: UNK
     Dates: start: 20200917
  21. BUDESONIDE. [Concomitant]
     Active Substance: BUDESONIDE
     Dosage: UNK
     Dates: start: 20200920

REACTIONS (1)
  - Cardiac arrest [Fatal]

NARRATIVE: CASE EVENT DATE: 20201020
